FAERS Safety Report 16838185 (Version 1)
Quarter: 2019Q3

REPORT INFORMATION
  Report Type: Spontaneous
  Country: GB (occurrence: GB)
  Receive Date: 20190923
  Receipt Date: 20190923
  Transmission Date: 20191005
  Serious: Yes (Congenital Anomaly)
  Sender: FDA-Public Use
  Company Number: GB-ACCORD-155522

PATIENT

DRUGS (1)
  1. RAMIPRIL. [Suspect]
     Active Substance: RAMIPRIL
     Indication: HYPERTENSION
     Route: 064

REACTIONS (4)
  - Congenital renal disorder [Unknown]
  - Oligohydramnios [Unknown]
  - Foetal exposure during pregnancy [Unknown]
  - Congenital urinary tract obstruction [Unknown]
